FAERS Safety Report 23072895 (Version 2)
Quarter: 2023Q4

REPORT INFORMATION
  Report Type: Spontaneous
  Country: TW (occurrence: TW)
  Receive Date: 20231017
  Receipt Date: 20231025
  Transmission Date: 20240110
  Serious: Yes (Hospitalization, Other)
  Sender: FDA-Public Use
  Company Number: None

PATIENT
  Age: 68 Year
  Sex: Male

DRUGS (2)
  1. MYCOPHENOLATE MOFETIL [Suspect]
     Active Substance: MYCOPHENOLATE MOFETIL
     Indication: Immunosuppressant drug therapy
     Dosage: 250 MILLIGRAM, BID (EVERY 12 HOURS0
     Route: 048
  2. TACROLIMUS [Suspect]
     Active Substance: TACROLIMUS
     Indication: Immunosuppressant drug therapy
     Dosage: 1 MILLIGRAM, BID (EVERY 12 HOURS)
     Route: 048

REACTIONS (5)
  - Necrotising retinitis [Recovered/Resolved]
  - Pseudopapilloedema [Recovered/Resolved]
  - Retinal vasculitis [Recovered/Resolved]
  - Varicella zoster virus infection [Unknown]
  - Genital herpes zoster [Recovered/Resolved]
